FAERS Safety Report 5712404-5 (Version None)
Quarter: 2008Q2

REPORT INFORMATION
  Report Type: 
  Country: None (occurrence: None)
  Receive Date: 20080422
  Receipt Date: 20080417
  Transmission Date: 20081010
  Serious: Yes (Death, Hospitalization, Other)
  Sender: FDA-Public Use
  Company Number: PHHY2008JP03066

PATIENT
  Age: 77 Year
  Sex: Female
  Weight: 64 kg

DRUGS (11)
  1. GLEEVEC [Suspect]
     Indication: GASTROINTESTINAL STROMAL TUMOUR
     Dosage: 200 MG/DAY, UNK
     Route: 048
     Dates: start: 20070402, end: 20070418
  2. GLEEVEC [Suspect]
     Dosage: 300 MG/DAY, UNK
     Route: 048
     Dates: start: 20070419, end: 20070517
  3. MAGNESIUM OXIDE [Concomitant]
     Indication: CONSTIPATION
     Route: 048
     Dates: start: 20070530
  4. URSO 250 [Concomitant]
     Indication: HEPATITIS C
     Route: 048
     Dates: start: 20070706
  5. NITRAZEPAM [Concomitant]
     Indication: INSOMNIA
     Route: 048
     Dates: start: 20070812
  6. LAXOBERON [Concomitant]
     Indication: CONSTIPATION
     Dosage: 7.5 MG, UNK
     Route: 048
     Dates: end: 20070627
  7. ULCERLMIN [Concomitant]
     Indication: GASTRITIS
     Route: 048
     Dates: start: 20070703
  8. ALFAROL [Concomitant]
     Indication: OSTEOPOROSIS
     Dosage: 1 MG, UNK
     Route: 048
     Dates: start: 20070706
  9. PARIET [Concomitant]
     Indication: GASTRITIS
     Dosage: 10 MG, UNK
     Route: 048
     Dates: start: 20070321, end: 20070620
  10. LIVACT [Concomitant]
     Indication: HYPOALBUMINAEMIA
     Dosage: 12.45 MG, UNK
     Route: 048
     Dates: start: 20070418, end: 20070523
  11. LASIX [Concomitant]
     Indication: OEDEMA
     Dosage: 20 MG, QD
     Route: 048
     Dates: start: 20070418, end: 20070627

REACTIONS (19)
  - ALANINE AMINOTRANSFERASE INCREASED [None]
  - AMMONIA INCREASED [None]
  - ANURIA [None]
  - ASPARTATE AMINOTRANSFERASE INCREASED [None]
  - BLOOD BILIRUBIN INCREASED [None]
  - BLOOD CREATININE INCREASED [None]
  - EYELID OEDEMA [None]
  - GASTRIC HAEMORRHAGE [None]
  - HAEMATOCHEZIA [None]
  - HAEMOGLOBIN DECREASED [None]
  - HAEMOSTASIS [None]
  - HEPATIC ENCEPHALOPATHY [None]
  - HEPATIC FAILURE [None]
  - LIVER FUNCTION TEST ABNORMAL [None]
  - NAUSEA [None]
  - PLATELET TRANSFUSION [None]
  - SIGMOIDOSCOPY ABNORMAL [None]
  - THROMBOCYTOPENIA [None]
  - URINE OUTPUT DECREASED [None]
